FAERS Safety Report 10209933 (Version 1)
Quarter: 2014Q2

REPORT INFORMATION
  Report Type: Spontaneous
  Country: FR (occurrence: FR)
  Receive Date: 20140602
  Receipt Date: 20140602
  Transmission Date: 20141212
  Serious: Yes (Congenital Anomaly)
  Sender: FDA-Public Use
  Company Number: PHHY2014FR062674

PATIENT
  Age: 0 Day
  Sex: Male
  Weight: 2.35 kg

DRUGS (6)
  1. NISISCO [Suspect]
     Indication: HYPERTENSION
     Dosage: MATERNAL DOSE: 1 DF (VALS 80 MG / HYDR 12.5 MG), DAILY
     Route: 064
     Dates: end: 20140325
  2. PANTOPRAZOLE [Concomitant]
     Dosage: UNK UKN, UNK
     Route: 064
     Dates: start: 201306, end: 20140325
  3. LERCAN [Concomitant]
     Indication: HYPERTENSION
     Dosage: UNK UKN, UNK
     Route: 064
     Dates: start: 201306, end: 20140325
  4. ADEPAL [Concomitant]
     Indication: CONTRACEPTION
     Dosage: UNK UKN, UNK
     Route: 064
     Dates: start: 201311
  5. LOXEN [Concomitant]
     Indication: HYPERTENSION
     Dosage: UNK UKN, UNK
     Route: 064
     Dates: start: 20140325
  6. TRANDATE [Concomitant]
     Indication: HYPERTENSION
     Dosage: UNK UKN, UNK
     Route: 064
     Dates: start: 20140325

REACTIONS (3)
  - Renal aplasia [Unknown]
  - Skeletal dysplasia [Unknown]
  - Blood creatinine increased [Unknown]
